FAERS Safety Report 5954190-X (Version None)
Quarter: 2008Q4

REPORT INFORMATION
  Report Type: 
  Country: None (occurrence: None)
  Receive Date: 20081117
  Receipt Date: 20081113
  Transmission Date: 20090506
  Serious: Yes (Life-Threatening, Hospitalization)
  Sender: FDA-Public Use
  Company Number: US-BRISTOL-MYERS SQUIBB COMPANY-14286991

PATIENT
  Age: 64 Year
  Sex: Male
  Weight: 95 kg

DRUGS (24)
  1. CARBOPLATIN [Suspect]
     Indication: NON-SMALL CELL LUNG CANCER
     Dosage: 1 DOSAGEFORM = 1 AUC
     Route: 042
     Dates: start: 20080528, end: 20080528
  2. ALIMTA [Suspect]
     Indication: NON-SMALL CELL LUNG CANCER
     Route: 042
     Dates: start: 20080528, end: 20080528
  3. AVASTIN [Suspect]
     Indication: NON-SMALL CELL LUNG CANCER
     Route: 042
     Dates: start: 20080528, end: 20080528
  4. BLINDED: ENZASTAURIN [Suspect]
     Indication: NON-SMALL CELL LUNG CANCER
     Dosage: 21MAY08-UNKNWN,3D/F, 3/D,ORAL.
     Route: 048
     Dates: start: 20080522, end: 20080522
  5. BLINDED: PLACEBO [Suspect]
     Indication: NON-SMALL CELL LUNG CANCER
     Dosage: 21MAY08-UNKNWN,3D/F, 3/D,ORAL.
     Route: 048
     Dates: start: 20080522, end: 20080522
  6. MULTI-VITAMIN [Concomitant]
     Dosage: TABLET
     Dates: start: 20080115
  7. FOLIC ACID [Concomitant]
     Dates: start: 20080115
  8. VITAMIN B-12 [Concomitant]
     Dates: start: 20080519
  9. ACIPHEX [Concomitant]
     Dates: start: 20080515
  10. VITAMIN E [Concomitant]
     Dates: start: 20080115
  11. VITAMIN D [Concomitant]
     Dates: start: 20080115
  12. ASCORBIC ACID [Concomitant]
     Dates: start: 20080115
  13. MAGNESIUM CITRATE [Concomitant]
     Dates: start: 20080527
  14. SENOKOT [Concomitant]
     Dates: start: 20080515
  15. MIRALAX [Concomitant]
     Dates: start: 20080515
  16. OXYCONTIN [Concomitant]
     Dates: start: 20080606
  17. PERCOCET [Concomitant]
     Dates: start: 20080606
  18. ZOFRAN [Concomitant]
     Dates: start: 20080603
  19. LORAZEPAM [Concomitant]
     Indication: NAUSEA
     Dates: start: 20080613
  20. ALEVE [Concomitant]
  21. SAW PALMETTO [Concomitant]
  22. CITRUCEL [Concomitant]
  23. SODIUM PHOSPHATES [Concomitant]
  24. DARVOCET [Concomitant]

REACTIONS (3)
  - CONSTIPATION [None]
  - INTESTINAL PERFORATION [None]
  - SEPSIS [None]
